FAERS Safety Report 6446978-6 (Version None)
Quarter: 2009Q4

REPORT INFORMATION
  Report Type: 
  Country: None (occurrence: None)
  Receive Date: 20091119
  Receipt Date: 20091110
  Transmission Date: 20100525
  Serious: Yes (Death)
  Sender: FDA-Public Use
  Company Number: JP-PFIZER INC-2009296966

PATIENT
  Age: 68 Year
  Sex: Female
  Weight: 40.7 kg

DRUGS (8)
  1. SILDENAFIL CITRATE [Suspect]
     Indication: PULMONARY HYPERTENSION
     Dosage: 20 MG, 3X/DAY
     Route: 048
     Dates: start: 20080807
  2. PREDONINE [Concomitant]
     Indication: INTERSTITIAL LUNG DISEASE
     Dosage: UNK
     Route: 048
     Dates: end: 20090107
  3. BACTRAMIN [Concomitant]
     Dosage: UNK
     Route: 048
     Dates: end: 20090107
  4. ALENDRONATE SODIUM [Concomitant]
     Indication: OSTEOPOROSIS
     Dosage: UNK
     Route: 048
     Dates: end: 20090107
  5. GASTER [Concomitant]
     Indication: GASTRITIS
     Dosage: UNK
     Route: 048
     Dates: end: 20090107
  6. PANTOSIN [Concomitant]
     Dosage: UNK
     Route: 048
     Dates: start: 20081224, end: 20090107
  7. MAGNESIUM OXIDE [Concomitant]
     Dosage: UNK
     Route: 048
     Dates: start: 20081224, end: 20090107
  8. CODEINE PHOSPHATE [Concomitant]
     Dosage: UNK
     Route: 048
     Dates: start: 20081224, end: 20090107

REACTIONS (1)
  - DEATH [None]
